FAERS Safety Report 5101477-9 (Version None)
Quarter: 2006Q3

REPORT INFORMATION
  Report Type: 
  Country: None (occurrence: None)
  Receive Date: 20060911
  Receipt Date: 20060524
  Transmission Date: 20061208
  Serious: Yes (Hospitalization)
  Sender: FDA-Public Use
  Company Number: FR-NOVOPROD-253675

PATIENT
  Age: 53 Year
  Sex: Female
  Weight: 70 kg

DRUGS (6)
  1. NORDITROPIN SIMPLEXX [Suspect]
     Indication: GROWTH HORMONE DEFICIENCY
     Dosage: .2 MG, QD
     Dates: start: 20031208
  2. AVADEN [Concomitant]
     Dosage: 2 MG, QD
     Route: 048
     Dates: start: 20050222
  3. PARIET [Concomitant]
     Dosage: 10 MG, QD
     Route: 048
  4. HYDROCORTISONE [Concomitant]
     Dosage: 10 MG, QD
     Route: 048
  5. LEVOTHYROXINE SODIUM [Concomitant]
     Dosage: 250 UG, QD
     Route: 048
     Dates: start: 19980101
  6. ACTONEL [Concomitant]
     Dosage: 35 MG, QD
     Route: 048
     Dates: start: 20040114

REACTIONS (2)
  - GASTROENTERITIS VIRAL [None]
  - HYPOTENSION [None]
